FAERS Safety Report 19176163 (Version 2)
Quarter: 2021Q3

REPORT INFORMATION
  Report Type: Spontaneous
  Country: US (occurrence: US)
  Receive Date: 20210423
  Receipt Date: 20210702
  Transmission Date: 20211014
  Serious: Yes (Hospitalization)
  Sender: FDA-Public Use
  Company Number: 2020SGN03632

PATIENT
  Sex: Female

DRUGS (5)
  1. TUKYSA [Suspect]
     Active Substance: TUCATINIB
     Dosage: UNK
  2. TUKYSA [Suspect]
     Active Substance: TUCATINIB
     Dosage: UNK
  3. TUKYSA [Suspect]
     Active Substance: TUCATINIB
     Dosage: UNK
  4. TUKYSA [Suspect]
     Active Substance: TUCATINIB
     Indication: BREAST CANCER FEMALE
     Dosage: 150 MG, UNK
  5. CAPECITABINE. [Suspect]
     Active Substance: CAPECITABINE
     Indication: BREAST CANCER FEMALE

REACTIONS (7)
  - Disease progression [Unknown]
  - Hospitalisation [Unknown]
  - Brain neoplasm [Unknown]
  - Diarrhoea [Unknown]
  - Paranasal sinus discomfort [Unknown]
  - Fatigue [Unknown]
  - Vision blurred [Unknown]
